FAERS Safety Report 4579547-3 (Version None)
Quarter: 2005Q1

REPORT INFORMATION
  Report Type: 
  Country: None (occurrence: None)
  Receive Date: 20050214
  Receipt Date: 20050131
  Transmission Date: 20050727
  Serious: Yes (Hospitalization)
  Sender: FDA-Public Use
  Company Number: US-JNJFOC-20040301373

PATIENT
  Sex: Female

DRUGS (11)
  1. INFLIXIMAB, RECOMBINANT [Suspect]
     Route: 042
  2. PREDNISONE [Concomitant]
     Route: 049
  3. PULMICORT [Concomitant]
     Route: 055
  4. DUONEB [Concomitant]
     Route: 055
  5. DUONEB [Concomitant]
     Route: 055
  6. ENALAPRIL MALEATE [Concomitant]
     Indication: HYPERTENSION
  7. ATROVENT [Concomitant]
     Route: 055
  8. ALBUTEROL [Concomitant]
     Route: 055
  9. COMBIVENT [Concomitant]
  10. COMBIVENT [Concomitant]
  11. VASOTEC [Concomitant]
     Indication: HYPERTENSION

REACTIONS (4)
  - ACUTE RESPIRATORY DISTRESS SYNDROME [None]
  - CHEST PAIN [None]
  - CHRONIC OBSTRUCTIVE AIRWAYS DISEASE EXACERBATED [None]
  - SINUS TACHYCARDIA [None]
